FAERS Safety Report 8637124 (Version 2)
Quarter: 2013Q3

REPORT INFORMATION
  Report Type: Spontaneous
  Country: US (occurrence: US)
  Receive Date: 20120627
  Receipt Date: 20130813
  Transmission Date: 20140515
  Serious: No
  Sender: FDA-Public Use
  Company Number: US-ASTRAZENECA-2012SE35618

PATIENT
  Age: 626 Month
  Sex: Female

DRUGS (4)
  1. NEXIUM [Suspect]
     Indication: GASTROOESOPHAGEAL REFLUX DISEASE
     Dosage: ONCE A DAY AS NEEDED
     Route: 048
  2. ACIPHEX [Concomitant]
  3. PROTONIX [Concomitant]
  4. PREVACID [Concomitant]
     Dosage: THREE TIMES A DAY

REACTIONS (5)
  - Osteoporosis [Unknown]
  - Bone density decreased [Unknown]
  - Multiple fractures [Unknown]
  - Rheumatoid arthritis [Unknown]
  - Vitamin D deficiency [Unknown]
